FAERS Safety Report 21274620 (Version 5)
Quarter: 2024Q2

REPORT INFORMATION
  Report Type: Report from Study
  Country: FR (occurrence: FR)
  Receive Date: 20220831
  Receipt Date: 20240515
  Transmission Date: 20240715
  Serious: No
  Sender: FDA-Public Use
  Company Number: FR-TAKEDA-2022TUS059568

PATIENT
  Sex: Female

DRUGS (12)
  1. ICATIBANT [Suspect]
     Active Substance: ICATIBANT ACETATE
     Indication: Hereditary angioedema with normal C1 esterase inhibitor
     Dosage: UNK
     Route: 065
     Dates: start: 20101203
  2. ICATIBANT [Suspect]
     Active Substance: ICATIBANT ACETATE
     Indication: Hereditary angioedema with normal C1 esterase inhibitor
     Dosage: UNK
     Route: 065
     Dates: start: 20101203
  3. ICATIBANT [Suspect]
     Active Substance: ICATIBANT ACETATE
     Dosage: UNK
     Route: 065
     Dates: start: 201307
  4. ICATIBANT [Suspect]
     Active Substance: ICATIBANT ACETATE
     Dosage: UNK
     Route: 065
     Dates: start: 201307
  5. RANITIDINE [Concomitant]
     Active Substance: RANITIDINE
     Indication: Gastrointestinal disorder
     Dosage: 300 MILLIGRAM, QD
     Route: 048
     Dates: start: 20170914
  6. EBASTINE [Concomitant]
     Active Substance: EBASTINE
     Indication: Angioedema
     Dosage: UNK UNK, QID
     Route: 048
     Dates: start: 20180927
  7. AMOXICILLIN\CLAVULANIC ACID [Concomitant]
     Active Substance: AMOXICILLIN\CLAVULANIC ACID
     Indication: Infection
     Dosage: 1 GRAM, Q8HR
     Route: 042
     Dates: start: 20190928, end: 20190929
  8. KARDEGIC [Concomitant]
     Active Substance: ASPIRIN DL-LYSINE
     Indication: Antiplatelet therapy
     Dosage: 75 MILLIGRAM, QD
     Route: 048
     Dates: start: 20201204
  9. LOVENOX [Concomitant]
     Active Substance: ENOXAPARIN SODIUM
     Indication: Anticoagulant therapy
     Dosage: 4000 INTERNATIONAL UNIT, QD
     Route: 058
     Dates: start: 20201204
  10. FUROSEMIDE [Concomitant]
     Active Substance: FUROSEMIDE
     Indication: Pulmonary oedema
     Dosage: 40 MILLIGRAM, QD
     Route: 030
     Dates: start: 20201204, end: 20210112
  11. DESLORATADINE [Concomitant]
     Active Substance: DESLORATADINE
     Indication: Hypersensitivity
     Dosage: 0.5 MILLIGRAM, QD
     Route: 048
     Dates: start: 20201204
  12. ZOPICLONE [Concomitant]
     Active Substance: ZOPICLONE
     Indication: Insomnia
     Dosage: 3.75 MILLIGRAM, QD
     Route: 048
     Dates: start: 20201204, end: 20210112

REACTIONS (2)
  - Off label use [Recovered/Resolved]
  - No adverse event [Unknown]

NARRATIVE: CASE EVENT DATE: 20111128
